FAERS Safety Report 9699244 (Version 2)
Quarter: 2013Q4

REPORT INFORMATION
  Report Type: Spontaneous
  Country: US (occurrence: US)
  Receive Date: 20131120
  Receipt Date: 20131120
  Transmission Date: 20140711
  Serious: No
  Sender: FDA-Public Use
  Company Number: US-GILEAD-2008-0015099

PATIENT
  Age: 66 Year
  Sex: Female

DRUGS (8)
  1. LETAIRIS [Suspect]
     Indication: PULMONARY ARTERIAL HYPERTENSION
     Route: 048
     Dates: start: 200710, end: 20080118
  2. LETAIRIS [Suspect]
     Route: 048
     Dates: start: 200805
  3. REVATIO [Concomitant]
  4. LASIX [Concomitant]
  5. CIPROFLOXACIN [Concomitant]
  6. NEXIUM [Concomitant]
  7. POTASSIUM [Concomitant]
  8. MULTIVITAMIN [Concomitant]

REACTIONS (1)
  - Liver function test abnormal [Recovered/Resolved]
